FAERS Safety Report 21835871 (Version 3)
Quarter: 2025Q2

REPORT INFORMATION
  Report Type: Report from Study
  Country: US (occurrence: US)
  Receive Date: 20230109
  Receipt Date: 20250606
  Transmission Date: 20250716
  Serious: Yes (Hospitalization, Other)
  Sender: TAKEDA
  Company Number: US-TAKEDA-US201940888

PATIENT
  Age: 35 Year
  Sex: Female

DRUGS (3)
  1. HUMAN IMMUNOGLOBULIN G [Suspect]
     Active Substance: HUMAN IMMUNOGLOBULIN G
     Indication: Immunodeficiency common variable
  2. HUMAN IMMUNOGLOBULIN G [Suspect]
     Active Substance: HUMAN IMMUNOGLOBULIN G
     Indication: Primary immunodeficiency syndrome
  3. HUMAN IMMUNOGLOBULIN G [Suspect]
     Active Substance: HUMAN IMMUNOGLOBULIN G
     Dosage: 24 GRAM, 1/WEEK

REACTIONS (11)
  - Nerve compression [Unknown]
  - Postoperative wound infection [Unknown]
  - Hip fracture [Unknown]
  - Infusion site pain [Unknown]
  - Foot fracture [Unknown]
  - Fall [Unknown]
  - Tooth disorder [Unknown]
  - Blood immunoglobulin G decreased [Unknown]
  - Vitamin B12 deficiency [Unknown]
  - Copper deficiency [Unknown]
  - Pain in extremity [Unknown]

NARRATIVE: CASE EVENT DATE: 20220801
